FAERS Safety Report 19747762 (Version 4)
Quarter: 2021Q4

REPORT INFORMATION
  Report Type: Report from Study
  Country: IT (occurrence: IT)
  Receive Date: 20210825
  Receipt Date: 20211124
  Transmission Date: 20220303
  Serious: Yes (Death)
  Sender: FDA-Public Use
  Company Number: IT-CELGENE-ITA-20210807382

PATIENT
  Age: 74 Year
  Sex: Male

DRUGS (11)
  1. REVLIMID [Suspect]
     Active Substance: LENALIDOMIDE
     Indication: Plasma cell myeloma
     Dosage: 25MG
     Route: 048
     Dates: start: 20200526, end: 20200615
  2. REVLIMID [Suspect]
     Active Substance: LENALIDOMIDE
     Dosage: UNKNOWN
     Route: 048
     Dates: start: 20200616, end: 20200622
  3. REVLIMID [Suspect]
     Active Substance: LENALIDOMIDE
     Dosage: 15MG
     Route: 048
     Dates: start: 20200623, end: 20200713
  4. REVLIMID [Suspect]
     Active Substance: LENALIDOMIDE
     Dosage: UNKNOWN
     Route: 048
     Dates: start: 20200714, end: 20200720
  5. REVLIMID [Suspect]
     Active Substance: LENALIDOMIDE
     Dosage: 15MG
     Route: 048
     Dates: start: 20200721, end: 20200810
  6. REVLIMID [Suspect]
     Active Substance: LENALIDOMIDE
     Dosage: UNKNOWN
     Route: 048
     Dates: start: 20200811, end: 20200817
  7. REVLIMID [Suspect]
     Active Substance: LENALIDOMIDE
     Dosage: 15MG
     Route: 048
     Dates: start: 20200818, end: 20200907
  8. DEXAMETHASONE [Suspect]
     Active Substance: DEXAMETHASONE
     Indication: Plasma cell myeloma
     Dosage: 4MG
     Route: 048
     Dates: start: 20200526, end: 20200622
  9. DEXAMETHASONE [Suspect]
     Active Substance: DEXAMETHASONE
     Dosage: 4MG
     Route: 048
     Dates: start: 20200623, end: 20200720
  10. DEXAMETHASONE [Suspect]
     Active Substance: DEXAMETHASONE
     Dosage: 4MG
     Route: 048
     Dates: start: 20200721, end: 20200817
  11. DEXAMETHASONE [Suspect]
     Active Substance: DEXAMETHASONE
     Dosage: 4MG
     Route: 048
     Dates: start: 20200818, end: 20200914

REACTIONS (1)
  - General physical health deterioration [Fatal]

NARRATIVE: CASE EVENT DATE: 20210524
